FAERS Safety Report 13453412 (Version 1)
Quarter: 2017Q2

REPORT INFORMATION
  Report Type: Spontaneous
  Country: US (occurrence: US)
  Receive Date: 20170418
  Receipt Date: 20170418
  Transmission Date: 20170830
  Serious: No
  Sender: FDA-Public Use
  Company Number: US-ALLERGAN-1666942US

PATIENT
  Age: 52 Year
  Sex: Female
  Weight: 61.22 kg

DRUGS (3)
  1. XANAX [Concomitant]
     Active Substance: ALPRAZOLAM
     Indication: ANXIETY
     Dosage: 0.5 MG, PRN
  2. LATISSE [Suspect]
     Active Substance: BIMATOPROST
     Indication: GROWTH OF EYELASHES
     Dosage: 1 GTT, QPM
     Route: 061
     Dates: start: 20160608
  3. LATISSE [Suspect]
     Active Substance: BIMATOPROST
     Dosage: 2 GTT, QPM
     Route: 061
     Dates: start: 201610

REACTIONS (6)
  - Incorrect dose administered [Unknown]
  - Dark circles under eyes [Not Recovered/Not Resolved]
  - Pruritus [Not Recovered/Not Resolved]
  - Eye irritation [Recovered/Resolved]
  - Drug ineffective [Unknown]
  - Blepharal pigmentation [Not Recovered/Not Resolved]

NARRATIVE: CASE EVENT DATE: 20150630
